FAERS Safety Report 4653191-1 (Version None)
Quarter: 2005Q2

REPORT INFORMATION
  Report Type: 
  Country: None (occurrence: None)
  Receive Date: 20050503
  Receipt Date: 20050420
  Transmission Date: 20051028
  Serious: No
  Sender: FDA-Public Use
  Company Number: A01200502705

PATIENT
  Age: 55 Year
  Sex: Male

DRUGS (1)
  1. BENESTAN - (ALFUZOSIN HYDROCHLORIDE) - TABLET PR - 10 MG [Suspect]
     Indication: URINARY INCONTINENCE
     Dosage: 10 MG OD ORAL
     Route: 048
     Dates: start: 20050209, end: 20050209

REACTIONS (2)
  - CONVULSION [None]
  - SYNCOPE [None]
